FAERS Safety Report 5028006-2 (Version None)
Quarter: 2006Q2

REPORT INFORMATION
  Report Type: 
  Country: None (occurrence: None)
  Receive Date: 20060501
  Receipt Date: 20060131
  Transmission Date: 20061013
  Serious: No
  Sender: FDA-Public Use
  Company Number: 200611195US

PATIENT
  Age: 10 Year

DRUGS (1)
  1. KETEK [Suspect]
     Dosage: PO
     Route: 048
     Dates: start: 20060130

REACTIONS (2)
  - ABDOMINAL PAIN [None]
  - DRUG ADMINISTRATION ERROR [None]
